FAERS Safety Report 9966256 (Version 1)
Quarter: 2014Q1

REPORT INFORMATION
  Report Type: Report from Study
  Country: US (occurrence: US)
  Receive Date: 20140305
  Receipt Date: 20140305
  Transmission Date: 20141002
  Serious: No
  Sender: FDA-Public Use
  Company Number: US-ABBVIE-13P-163-1120518-00

PATIENT
  Age: 63 Year
  Sex: Female

DRUGS (12)
  1. HUMIRA [Suspect]
     Indication: PSORIASIS
     Dates: start: 20130507
  2. PLAVIX [Concomitant]
     Indication: THROMBOSIS PROPHYLAXIS
  3. PLAVIX [Concomitant]
     Indication: CORONARY ARTERIAL STENT INSERTION
  4. ATORVASTATIN [Concomitant]
     Indication: HYPERCHOLESTEROLAEMIA
  5. CARVEDILOL [Concomitant]
     Indication: HYPERTENSION
  6. CARVEDILOL [Concomitant]
     Indication: CARDIAC DISORDER
  7. ASA [Concomitant]
     Indication: CARDIOVASCULAR EVENT PROPHYLAXIS
  8. LAMICTAL [Concomitant]
     Indication: ANXIETY
  9. TEMAZEPAM [Concomitant]
     Indication: INSOMNIA
     Dosage: AT BEDTIME
  10. AMLODIPINE [Concomitant]
     Indication: HYPERTENSION
  11. ACCUPRIL [Concomitant]
     Indication: HYPERTENSION
  12. MELOXICAM [Concomitant]
     Indication: ANTIINFLAMMATORY THERAPY

REACTIONS (4)
  - Fatigue [Unknown]
  - Dyspnoea [Not Recovered/Not Resolved]
  - Lethargy [Unknown]
  - Chest discomfort [Unknown]
